FAERS Safety Report 14771862 (Version 3)
Quarter: 2019Q3

REPORT INFORMATION
  Report Type: Spontaneous
  Country: US (occurrence: US)
  Receive Date: 20180417
  Receipt Date: 20190715
  Transmission Date: 20191004
  Serious: Yes (Hospitalization)
  Sender: FDA-Public Use
  Company Number: US-ACTELION-A-NJ2018-168299

PATIENT
  Age: 63 Year
  Sex: Female

DRUGS (6)
  1. CIPROFLOXACIN. [Concomitant]
     Active Substance: CIPROFLOXACIN
  2. HYDROCHLOROTHIAZIDE. [Concomitant]
     Active Substance: HYDROCHLOROTHIAZIDE
  3. METOCHLOPRAMIDE [Concomitant]
     Active Substance: METOCLOPRAMIDE HYDROCHLORIDE
  4. TRAMADOL HCL [Concomitant]
     Active Substance: TRAMADOL HYDROCHLORIDE
  5. SPIRONOLACTONE. [Concomitant]
     Active Substance: SPIRONOLACTONE
  6. OPSUMIT [Suspect]
     Active Substance: MACITENTAN
     Indication: PULMONARY HYPERTENSION
     Dosage: 10 MG, UNK
     Route: 048
     Dates: start: 20171027

REACTIONS (14)
  - Pain [Unknown]
  - Mobility decreased [Recovered/Resolved]
  - Fluid overload [Recovered/Resolved]
  - Pulmonary hypertension [Unknown]
  - Spinal osteoarthritis [Recovered/Resolved]
  - Dyspnoea [Recovered/Resolved]
  - Neck pain [Recovered/Resolved]
  - Oedema peripheral [Recovered/Resolved]
  - Aspartate aminotransferase increased [Unknown]
  - Intervertebral disc protrusion [Unknown]
  - Abdominal hernia [Unknown]
  - Gait disturbance [Unknown]
  - Blood bilirubin increased [Unknown]
  - Malaise [Unknown]

NARRATIVE: CASE EVENT DATE: 20171204
